FAERS Safety Report 6375164-3 (Version None)
Quarter: 2009Q3

REPORT INFORMATION
  Report Type: 
  Country: None (occurrence: None)
  Receive Date: 20090924
  Receipt Date: 20090910
  Transmission Date: 20100115
  Serious: Yes (Life-Threatening)
  Sender: FDA-Public Use
  Company Number: FR-MYLANLABS-2009S1011775

PATIENT
  Age: 36 Year
  Sex: Female

DRUGS (11)
  1. ETOPOSIDE MERCK [Suspect]
     Indication: BONE MARROW TRANSPLANT
     Route: 042
     Dates: start: 20090217, end: 20090220
  2. CYCLOPHOSPHAMIDE [Suspect]
     Indication: BONE MARROW TRANSPLANT
     Route: 042
     Dates: start: 20090217, end: 20090220
  3. CARBOPLATIN [Suspect]
     Indication: BONE MARROW TRANSPLANT
     Route: 042
     Dates: start: 20090217, end: 20090220
  4. TIORFAN [Concomitant]
  5. FLAGYL [Concomitant]
  6. ZOPHREN [Concomitant]
  7. EMEND [Concomitant]
  8. LARGACTYL [Concomitant]
  9. FORTUM [Concomitant]
     Dates: start: 20090223
  10. AMIKLIN [Concomitant]
     Dates: end: 20090224
  11. CIFLOX [Concomitant]
     Dates: start: 20090224

REACTIONS (3)
  - NEPHROTIC SYNDROME [None]
  - PULMONARY ALVEOLAR HAEMORRHAGE [None]
  - THROMBOTIC MICROANGIOPATHY [None]
